FAERS Safety Report 10060429 (Version 2)
Quarter: 2014Q2

REPORT INFORMATION
  Report Type: Spontaneous
  Country: NL (occurrence: NL)
  Receive Date: 20140404
  Receipt Date: 20140505
  Transmission Date: 20141212
  Serious: Yes (Other)
  Sender: FDA-Public Use
  Company Number: NL-JNJFOC-20140317203

PATIENT
  Sex: 0

DRUGS (4)
  1. RISPERIDONE [Suspect]
     Indication: SCHIZOPHRENIA
     Route: 065
  2. DIAZEPAM [Concomitant]
  3. PROPRANOLOL [Concomitant]
  4. BIPERIDEN [Concomitant]

REACTIONS (7)
  - Drug intolerance [Unknown]
  - Incontinence [Unknown]
  - Drug ineffective [Unknown]
  - Ejaculation delayed [Unknown]
  - Depressed mood [Unknown]
  - Fatigue [Unknown]
  - Treatment noncompliance [Unknown]
